FAERS Safety Report 9698403 (Version 1)
Quarter: 2013Q4

REPORT INFORMATION
  Report Type: Spontaneous
  Country: US (occurrence: US)
  Receive Date: 20131120
  Receipt Date: 20131120
  Transmission Date: 20140711
  Serious: Yes (Other)
  Sender: FDA-Public Use
  Company Number: US-ALLERGAN-1317970US

PATIENT
  Age: 100 Year
  Sex: Female

DRUGS (1)
  1. RESTASIS [Suspect]
     Indication: PRODUCT USED FOR UNKNOWN INDICATION
     Dosage: 3 APPLICATIONS (NOS)
     Route: 047
     Dates: start: 20131113, end: 20131114

REACTIONS (2)
  - Corneal oedema [Unknown]
  - Skin striae [Unknown]
